FAERS Safety Report 9925029 (Version 2)
Quarter: 2014Q1

REPORT INFORMATION
  Report Type: Spontaneous
  Country: US (occurrence: US)
  Receive Date: 20140226
  Receipt Date: 20140226
  Transmission Date: 20141002
  Serious: No
  Sender: FDA-Public Use
  Company Number: US-PFIZER INC-2013338103

PATIENT
  Age: 51 Year
  Sex: Female
  Weight: 83.9 kg

DRUGS (3)
  1. LYRICA [Suspect]
     Indication: FIBROMYALGIA
     Dosage: 150 MG, 1X/DAY
     Dates: start: 2013
  2. LYRICA [Suspect]
     Dosage: 75 MG, 3X/DAY
  3. CELEBREX [Concomitant]
     Dosage: UNK

REACTIONS (5)
  - Malaise [Unknown]
  - Vision blurred [Unknown]
  - Drug ineffective [Unknown]
  - Rash [Unknown]
  - Influenza [Unknown]
